FAERS Safety Report 4561101-0 (Version None)
Quarter: 2005Q1

REPORT INFORMATION
  Report Type: 
  Country: None (occurrence: None)
  Receive Date: 20050121
  Receipt Date: 20050111
  Transmission Date: 20050727
  Serious: Yes (Hospitalization, Other)
  Sender: FDA-Public Use
  Company Number: 2005-00107

PATIENT
  Age: 58 Year
  Sex: Female

DRUGS (4)
  1. ALLOPURINOL [Suspect]
     Indication: HYPERURICAEMIA
     Dosage: 200 MG QD X 6 WEEKS, ORAL
     Route: 048
     Dates: start: 20020401, end: 20020101
  2. COLCHICINE [Concomitant]
  3. ATENOLOL [Concomitant]
  4. HYDROCHLOROTHIAZIDE [Concomitant]

REACTIONS (5)
  - BLOOD AMYLASE INCREASED [None]
  - DIABETES MELLITUS [None]
  - DRUG HYPERSENSITIVITY [None]
  - LIPASE INCREASED [None]
  - PANCREATIC INJURY [None]
